FAERS Safety Report 6813413-5 (Version None)
Quarter: 2010Q3

REPORT INFORMATION
  Report Type: 
  Country: None (occurrence: None)
  Receive Date: 20100701
  Receipt Date: 20100624
  Transmission Date: 20110219
  Serious: Yes (Hospitalization)
  Sender: FDA-Public Use
  Company Number: US-SANOFI-AVENTIS-2010SA037385

PATIENT
  Age: 54 Year
  Sex: Female

DRUGS (3)
  1. LANTUS [Suspect]
     Indication: TYPE 2 DIABETES MELLITUS
     Dosage: DOSE:10 UNIT(S)
     Route: 058
     Dates: start: 20100119, end: 20100119
  2. LANTUS [Suspect]
     Dosage: DOSE:5 UNIT(S)
     Route: 058
     Dates: start: 20100120, end: 20100120
  3. LANTUS [Suspect]
     Dosage: DOSE:10 UNIT(S)
     Route: 058
     Dates: start: 20100121

REACTIONS (3)
  - CELLULITIS [None]
  - RASH [None]
  - SWELLING [None]
